FAERS Safety Report 6088790-6 (Version None)
Quarter: 2009Q1

REPORT INFORMATION
  Report Type: 
  Country: None (occurrence: None)
  Receive Date: 20090224
  Receipt Date: 20090212
  Transmission Date: 20090719
  Serious: Yes (Hospitalization)
  Sender: FDA-Public Use
  Company Number: DK-JNJCH-2009004274

PATIENT
  Sex: Female

DRUGS (1)
  1. LISTERINE MOUTHWASH [Suspect]
     Indication: DENTAL DISORDER PROPHYLAXIS
     Dosage: TEXT:UNSPECIFIED
     Route: 048

REACTIONS (1)
  - APPLICATION SITE SWELLING [None]
